FAERS Safety Report 21972874 (Version 1)
Quarter: 2023Q1

REPORT INFORMATION
  Report Type: Spontaneous
  Country: US (occurrence: None)
  Receive Date: 20230207
  Receipt Date: 20230207
  Transmission Date: 20230418
  Serious: Yes (Hospitalization)
  Sender: FDA-Public Use
  Company Number: None

PATIENT
  Age: 70 Year
  Sex: Female

DRUGS (1)
  1. LENALIDOMIDE [Suspect]
     Active Substance: LENALIDOMIDE
     Indication: Plasma cell myeloma
     Dosage: FREQUENCY : DAILY;?
     Route: 048
     Dates: start: 20160729

REACTIONS (9)
  - Product substitution issue [None]
  - Nausea [None]
  - Vomiting [None]
  - Diarrhoea [None]
  - Gastrointestinal haemorrhage [None]
  - Haemorrhoids [None]
  - Diverticulum intestinal [None]
  - Gastrointestinal mucosa hyperaemia [None]
  - Colitis ischaemic [None]

NARRATIVE: CASE EVENT DATE: 20230120
